FAERS Safety Report 6348810-8 (Version None)
Quarter: 2009Q3

REPORT INFORMATION
  Report Type: 
  Country: None (occurrence: None)
  Receive Date: 20090911
  Receipt Date: 20090902
  Transmission Date: 20100115
  Serious: Yes (Other)
  Sender: FDA-Public Use
  Company Number: US-AMGEN-QUU362826

PATIENT
  Sex: Female

DRUGS (2)
  1. ENBREL [Suspect]
     Indication: RHEUMATOID ARTHRITIS
     Route: 058
     Dates: start: 20060901
  2. ENBREL [Suspect]
     Indication: PSORIASIS

REACTIONS (11)
  - ANXIETY [None]
  - DIZZINESS [None]
  - GASTROINTESTINAL MOTILITY DISORDER [None]
  - HEADACHE [None]
  - IRRITABLE BOWEL SYNDROME [None]
  - MIDDLE EAR EFFUSION [None]
  - NAUSEA [None]
  - OTITIS MEDIA [None]
  - PALPITATIONS [None]
  - PSORIASIS [None]
  - RHEUMATOID ARTHRITIS [None]
